FAERS Safety Report 8583778-5 (Version None)
Quarter: 2012Q3

REPORT INFORMATION
  Report Type: 
  Country: None (occurrence: None)
  Receive Date: 20120810
  Receipt Date: 20120727
  Transmission Date: 20120928
  Serious: Yes (Hospitalization, Disabling, Other)
  Sender: FDA-Public Use
  Company Number: US-009507513-1203USA03296

PATIENT

DRUGS (4)
  1. FOSAMAX [Suspect]
     Dosage: 70 MG, QW
     Route: 048
     Dates: start: 20010406, end: 20040324
  2. FOSAMAX [Suspect]
     Indication: OSTEOPOROSIS
     Dosage: 10 MG, UNK
     Route: 048
     Dates: start: 20000408, end: 20010401
  3. CALCIUM (UNSPECIFIED) (+) VITAMIN D (UNSPECIFIED) [Concomitant]
     Indication: OSTEOPOROSIS
  4. LEVOXYL [Concomitant]
     Dosage: UNK

REACTIONS (38)
  - LOW TURNOVER OSTEOPATHY [None]
  - OSTEOPOROSIS [None]
  - STRESS FRACTURE [None]
  - SPINAL OSTEOARTHRITIS [None]
  - COLONIC POLYP [None]
  - FALL [None]
  - TONSILLECTOMY [None]
  - MELANOCYTIC NAEVUS [None]
  - FIBROMYALGIA [None]
  - NEPHROLITHIASIS [None]
  - CATHETERISATION CARDIAC [None]
  - DEPRESSION [None]
  - OEDEMA PERIPHERAL [None]
  - OSTEOARTHRITIS [None]
  - VOMITING [None]
  - DRUG INEFFECTIVE [None]
  - TOOTH EXTRACTION [None]
  - HYPOGLYCAEMIA [None]
  - WEIGHT DECREASED [None]
  - ARTHRALGIA [None]
  - DRUG HYPERSENSITIVITY [None]
  - OSTEOPENIA [None]
  - BLADDER CALCULUS REMOVAL [None]
  - CHEST PAIN [None]
  - SPINAL PAIN [None]
  - FATIGUE [None]
  - HIP FRACTURE [None]
  - MITRAL VALVE INCOMPETENCE [None]
  - OFF LABEL USE [None]
  - FEMUR FRACTURE [None]
  - RHEUMATIC FEVER [None]
  - DIARRHOEA [None]
  - MUSCULOSKELETAL PAIN [None]
  - ASTHMA [None]
  - BREAST ABSCESS [None]
  - BRONCHITIS [None]
  - WEIGHT LOSS POOR [None]
  - HEADACHE [None]
